FAERS Safety Report 8615245-4 (Version None)
Quarter: 2012Q3

REPORT INFORMATION
  Report Type: 
  Country: None (occurrence: None)
  Receive Date: 20120823
  Receipt Date: 20080502
  Transmission Date: 20120928
  Serious: Yes (Death, Other)
  Sender: FDA-Public Use
  Company Number: CO-PFIZER INC-2012204004

PATIENT
  Age: 54 Year
  Sex: Male

DRUGS (4)
  1. LIPITOR [Suspect]
     Indication: DYSLIPIDAEMIA
     Dosage: 10 MG, ONCE DAILY
  2. VERAPAMIL HYDROCHLORIDE [Concomitant]
     Dosage: 120 MG,  TWICE DAILY
  3. ENALAPRIL MALEATE [Concomitant]
     Dosage: 20 MG, TWICE DAILY
  4. OLMESARTAN MEDOXOMIL [Suspect]
     Indication: HYPERTENSION
     Dosage: 20 MG, ONCE DAILY

REACTIONS (7)
  - HAEMATURIA [None]
  - EXERCISE LACK OF [None]
  - OBESITY [None]
  - TOBACCO ABUSE [None]
  - CARDIAC DISORDER [None]
  - DEATH [None]
  - ANGIOPATHY [None]
